FAERS Safety Report 8580885-8 (Version None)
Quarter: 2012Q3

REPORT INFORMATION
  Report Type: 
  Country: None (occurrence: None)
  Receive Date: 20120726
  Receipt Date: 20120716
  Transmission Date: 20120928
  Serious: Yes (Disabling, Other)
  Sender: FDA-Public Use
  Company Number: 2012000183

PATIENT
  Age: 54 Year
  Sex: Female

DRUGS (10)
  1. NOVO-CYCLOPRINE (CYCLOBENZAPRINE HYDROCHLORIDE) [Concomitant]
  2. HISTANTIL (PROMETHAZINE HYDROCHLORIDE) [Concomitant]
  3. ACEON [Suspect]
     Indication: PRODUCT USED FOR UNKNOWN INDICATION
     Dosage: 2 MG, ORAL
     Route: 048
  4. HYDROCHLOROTHIAZIDE [Suspect]
     Indication: PRODUCT USED FOR UNKNOWN INDICATION
     Dosage: ORAL
     Route: 048
  5. CLONAZEPAM [Concomitant]
  6. EMTEC (CODEINE PHOSPHATE, PARACETAMOL) [Concomitant]
  7. LISINOPRIL AND HYDROCHLOROTHIAZIDE [Suspect]
     Indication: PRODUCT USED FOR UNKNOWN INDICATION
     Dosage: ORAL
     Route: 048
  8. LYRICA [Concomitant]
  9. AMLODIPINE [Suspect]
     Indication: PRODUCT USED FOR UNKNOWN INDICATION
     Dosage: 5 MG, QD, ORAL
     Route: 048
  10. DIOVAN [Suspect]
     Indication: PRODUCT USED FOR UNKNOWN INDICATION
     Dosage: 2 MG, ORAL
     Route: 048

REACTIONS (10)
  - GAIT DISTURBANCE [None]
  - ORAL FUNGAL INFECTION [None]
  - DIZZINESS [None]
  - MOOD ALTERED [None]
  - GASTROINTESTINAL PAIN [None]
  - OEDEMA PERIPHERAL [None]
  - TONGUE ULCERATION [None]
  - EYE DISORDER [None]
  - FATIGUE [None]
  - FEELING HOT [None]
